FAERS Safety Report 23402665 (Version 1)
Quarter: 2024Q1

REPORT INFORMATION
  Report Type: Report from Study
  Country: US (occurrence: US)
  Receive Date: 20240115
  Receipt Date: 20240115
  Transmission Date: 20240410
  Serious: Yes (Other)
  Sender: FDA-Public Use
  Company Number: US-OTSUKA-2024_000801

PATIENT
  Age: 42 Year
  Sex: Male

DRUGS (5)
  1. ARIPIPRAZOLE [Interacting]
     Active Substance: ARIPIPRAZOLE
     Indication: Schizophrenia
     Dosage: 300 MG, EVERY 4 WEEKS
     Route: 065
  2. ARIPIPRAZOLE [Interacting]
     Active Substance: ARIPIPRAZOLE
     Indication: Bipolar disorder
  3. BENADRYL [Interacting]
     Active Substance: DIPHENHYDRAMINE HYDROCHLORIDE
     Indication: Product used for unknown indication
     Dosage: UNK
     Route: 065
  4. MELATONIN [Interacting]
     Active Substance: MELATONIN
     Indication: Product used for unknown indication
     Dosage: UNK
     Route: 065
  5. DEPAKOTE [Interacting]
     Active Substance: DIVALPROEX SODIUM
     Indication: Product used for unknown indication
     Dosage: UNK
     Route: 065

REACTIONS (14)
  - Paralysis [Not Recovered/Not Resolved]
  - Seizure [Unknown]
  - Full blood count decreased [Unknown]
  - Palpitations [Recovering/Resolving]
  - Pain in extremity [Not Recovered/Not Resolved]
  - Musculoskeletal stiffness [Not Recovered/Not Resolved]
  - Gastrooesophageal reflux disease [Unknown]
  - White blood cell count decreased [Unknown]
  - Tremor [Not Recovered/Not Resolved]
  - Abdominal discomfort [Unknown]
  - Drug interaction [Unknown]
  - Inability to afford medication [Unknown]
  - Insurance issue [Unknown]
  - Underdose [Unknown]

NARRATIVE: CASE EVENT DATE: 20230102
